FAERS Safety Report 9457579 (Version 1)
Quarter: 2013Q3

REPORT INFORMATION
  Report Type: Spontaneous
  Country: US (occurrence: US)
  Receive Date: 20130814
  Receipt Date: 20130814
  Transmission Date: 20140515
  Serious: No
  Sender: FDA-Public Use
  Company Number: US-JNJFOC-20130717003

PATIENT
  Age: 41 Year
  Sex: Male
  Weight: 81.65 kg

DRUGS (4)
  1. INVEGA [Suspect]
     Indication: BIPOLAR DISORDER
     Route: 048
     Dates: start: 2009
  2. BUSPIRONE [Concomitant]
     Route: 065
  3. SEROQUEL [Concomitant]
     Route: 065
  4. LAMICTAL [Concomitant]
     Route: 065

REACTIONS (1)
  - Drug dose omission [Not Recovered/Not Resolved]
